FAERS Safety Report 13119068 (Version 1)
Quarter: 2017Q1

REPORT INFORMATION
  Report Type: Spontaneous
  Country: US (occurrence: US)
  Receive Date: 20170116
  Receipt Date: 20170116
  Transmission Date: 20170428
  Serious: No
  Sender: FDA-Public Use
  Company Number: US-MANNKIND CORPORATION-2016MK000331

PATIENT
  Age: 28 Year
  Sex: Female
  Weight: 68.1 kg

DRUGS (3)
  1. TRICEBA [Concomitant]
     Indication: TYPE 1 DIABETES MELLITUS
     Route: 065
  2. AFREZZA [Suspect]
     Active Substance: INSULIN HUMAN
     Dates: start: 2016
  3. AFREZZA [Suspect]
     Active Substance: INSULIN HUMAN
     Indication: TYPE 1 DIABETES MELLITUS
     Dates: start: 201609, end: 20161019

REACTIONS (5)
  - Blood glucose increased [Not Recovered/Not Resolved]
  - Cough [Not Recovered/Not Resolved]
  - Blood glucose decreased [Not Recovered/Not Resolved]
  - Dyspnoea [Unknown]
  - Extra dose administered [Not Recovered/Not Resolved]

NARRATIVE: CASE EVENT DATE: 2016
